FAERS Safety Report 14295980 (Version 3)
Quarter: 2018Q4

REPORT INFORMATION
  Report Type: Spontaneous
  Country: DE (occurrence: DE)
  Receive Date: 20171218
  Receipt Date: 20181213
  Transmission Date: 20190204
  Serious: Yes (Death, Hospitalization, Other)
  Sender: FDA-Public Use
  Company Number: DE-JNJFOC-20171220576

PATIENT
  Age: 69 Year
  Sex: Female
  Weight: 86.6 kg

DRUGS (5)
  1. CAELYX [Suspect]
     Active Substance: DOXORUBICIN HYDROCHLORIDE
     Indication: OVARIAN CANCER
     Dosage: 2 CYCLES
     Route: 065
     Dates: start: 201307
  2. DOXORUBICIN HYDROCHLORIDE. [Suspect]
     Active Substance: DOXORUBICIN HYDROCHLORIDE
     Indication: OVARIAN CANCER
     Dosage: FOR 3 MONTHS
     Route: 065
     Dates: start: 201306
  3. CISPLATIN. [Suspect]
     Active Substance: CISPLATIN
     Indication: OVARIAN CANCER
     Route: 065
     Dates: start: 201303, end: 201306
  4. TOPOTECAN [Suspect]
     Active Substance: TOPOTECAN HYDROCHLORIDE
     Indication: OVARIAN CANCER
     Route: 065
     Dates: start: 201309
  5. DOXORUBICIN HYDROCHLORIDE. [Suspect]
     Active Substance: DOXORUBICIN HYDROCHLORIDE
     Indication: OVARIAN CANCER
     Dosage: 2 CYCLES
     Route: 065
     Dates: start: 201303, end: 201306

REACTIONS (5)
  - Respiratory failure [Fatal]
  - Ileus [Fatal]
  - Urinary tract obstruction [Unknown]
  - Ascites [Unknown]
  - Pleural effusion [Fatal]

NARRATIVE: CASE EVENT DATE: 201309
